FAERS Safety Report 7524118-X (Version None)
Quarter: 2011Q2

REPORT INFORMATION
  Report Type: 
  Country: None (occurrence: None)
  Receive Date: 20110606
  Receipt Date: 20110527
  Transmission Date: 20111010
  Serious: Yes (Hospitalization)
  Sender: FDA-Public Use
  Company Number: US-BIOGENIDEC-2011BI018067

PATIENT
  Age: 27 Year
  Sex: Female

DRUGS (2)
  1. BIRTH CONTROL PILLS (NOS) [Concomitant]
  2. AVONEX [Suspect]
     Indication: MULTIPLE SCLEROSIS
     Route: 030
     Dates: start: 20100501, end: 20110330

REACTIONS (2)
  - DIZZINESS [None]
  - MIGRAINE [None]
